FAERS Safety Report 4370149-0 (Version None)
Quarter: 2004Q2

REPORT INFORMATION
  Report Type: 
  Country: None (occurrence: None)
  Receive Date: 20040603
  Receipt Date: 20040423
  Transmission Date: 20050107
  Serious: Yes (Other)
  Sender: FDA-Public Use
  Company Number: US-BRISTOL-MYERS SQUIBB COMPANY-12570271

PATIENT
  Sex: Female

DRUGS (4)
  1. ABILIFY [Suspect]
     Indication: PSYCHOTIC DISORDER
     Route: 048
  2. EFFEXOR XR [Concomitant]
  3. ATIVAN [Concomitant]
  4. TRIFLUOPERAZINE HCL [Concomitant]

REACTIONS (1)
  - INTESTINAL OBSTRUCTION [None]
